FAERS Safety Report 6197175-3 (Version None)
Quarter: 2009Q2

REPORT INFORMATION
  Report Type: 
  Country: None (occurrence: None)
  Receive Date: 20090520
  Receipt Date: 20090513
  Transmission Date: 20091009
  Serious: Yes (Death)
  Sender: FDA-Public Use
  Company Number: US-GILEAD-2009-0021952

PATIENT
  Sex: Female
  Weight: 43.584 kg

DRUGS (20)
  1. LETAIRIS [Suspect]
     Indication: PULMONARY ARTERIAL HYPERTENSION
     Route: 048
     Dates: start: 20090324
  2. LASIX [Concomitant]
  3. SPIRONOLACTONE [Concomitant]
  4. PROCARDIA XL [Concomitant]
  5. COZAAR [Concomitant]
  6. PREDNISONE [Concomitant]
  7. ALENDRONATE SODIUM [Concomitant]
  8. FLONASE [Concomitant]
  9. JANUVIA [Concomitant]
  10. HYDROCODONE BITARTRATE + ACETAMINOPHEN [Concomitant]
  11. VITAMIN D [Concomitant]
  12. XANAX [Concomitant]
  13. ASPIRIN [Concomitant]
  14. TUMS CALCIUM [Concomitant]
  15. PROTONIX [Concomitant]
  16. POLYETHYLENE GLYCOL [Concomitant]
  17. COLACE [Concomitant]
  18. LACTAID [Concomitant]
  19. METRONIDAZOLE CREAM [Concomitant]
  20. PROCTOSOL-HC [Concomitant]

REACTIONS (1)
  - DEATH [None]
